FAERS Safety Report 13673259 (Version 1)
Quarter: 2017Q2

REPORT INFORMATION
  Report Type: Spontaneous
  Country: US (occurrence: US)
  Receive Date: 20170621
  Receipt Date: 20170621
  Transmission Date: 20170830
  Serious: No
  Sender: FDA-Public Use
  Company Number: US-XTTRIUM LABORATORIES, INC-2022331

PATIENT
  Sex: Male

DRUGS (2)
  1. LISTERINE TOTAL CARE [Concomitant]
     Active Substance: SODIUM FLUORIDE
     Route: 002
     Dates: start: 20170404, end: 20170404
  2. CHLORHEXIDINE GLUCONATE. [Suspect]
     Active Substance: CHLORHEXIDINE GLUCONATE
     Indication: PRODUCT USED FOR UNKNOWN INDICATION
     Route: 002
     Dates: start: 20170404, end: 20170404

REACTIONS (1)
  - Chromatopsia [Unknown]
